FAERS Safety Report 5602236-0 (Version None)
Quarter: 2008Q1

REPORT INFORMATION
  Report Type: 
  Country: None (occurrence: None)
  Receive Date: 20080125
  Receipt Date: 20080122
  Transmission Date: 20080703
  Serious: Yes (Life-Threatening)
  Sender: FDA-Public Use
  Company Number: US-KINGPHARMUSA00001-K200800020

PATIENT

DRUGS (2)
  1. LEVOXYL [Suspect]
  2. BENADRYL [Interacting]
     Dosage: ^TWO^

REACTIONS (1)
  - ACCIDENTAL OVERDOSE [None]
